FAERS Safety Report 7136690-2 (Version None)
Quarter: 2010Q4

REPORT INFORMATION
  Report Type: 
  Country: None (occurrence: None)
  Receive Date: 20101206
  Receipt Date: 20070328
  Transmission Date: 20110411
  Serious: Yes (Death)
  Sender: FDA-Public Use
  Company Number: US-ACTELION-A-NJ2007-14742

PATIENT

DRUGS (22)
  1. ILOPROST INHALATION SOLUTION UNKNOWN US [Suspect]
     Indication: PULMONARY HYPERTENSION
     Dosage: UNK UG, 6 X DAY
     Route: 055
     Dates: start: 20060801, end: 20070324
  2. TRACLEER [Concomitant]
  3. POTASSIUM CHLORIDE [Concomitant]
  4. LASIX [Concomitant]
  5. ALLEGRA [Concomitant]
  6. OXYGEN [Concomitant]
  7. AMBIEN [Concomitant]
  8. ALDACTONE [Concomitant]
  9. REGLAN [Concomitant]
  10. SILDENAFIL CITRATE [Concomitant]
  11. NOVOLOG [Concomitant]
  12. QUININE [Concomitant]
  13. MOBIC [Concomitant]
  14. CENTRUM [Concomitant]
  15. FOSAMAX [Concomitant]
  16. PLAQUENIL [Concomitant]
  17. ADVAIR [Concomitant]
  18. DARVOCET-N 100 [Concomitant]
  19. ALPHAGAN [Concomitant]
  20. NEXIUM [Concomitant]
  21. ZANTAC [Concomitant]
  22. VASOTEC [Concomitant]

REACTIONS (1)
  - DEATH [None]
